FAERS Safety Report 16029315 (Version 2)
Quarter: 2019Q2

REPORT INFORMATION
  Report Type: Spontaneous
  Country: US (occurrence: US)
  Receive Date: 20190304
  Receipt Date: 20190417
  Transmission Date: 20190711
  Serious: No
  Sender: FDA-Public Use
  Company Number: US-SA-2019SA058260

PATIENT
  Age: 15 Year
  Sex: Male
  Weight: 62.59 kg

DRUGS (8)
  1. ACETAMINOPHEN. [Concomitant]
     Active Substance: ACETAMINOPHEN
     Dosage: 500 MG, UNK
     Route: 048
     Dates: start: 20161116
  2. NORMAL SALINE [Concomitant]
     Active Substance: SODIUM CHLORIDE
     Dosage: 0.9 %, UNK
     Route: 042
     Dates: start: 20181116
  3. STERILE WATER [Concomitant]
     Active Substance: WATER
     Dosage: 1 DF, UNK
     Route: 042
     Dates: start: 20181116
  4. SODIUM CHLORIDE. [Concomitant]
     Active Substance: SODIUM CHLORIDE
     Dosage: 0.9 %, UNK
     Route: 042
     Dates: start: 20181116
  5. DIPHENHYDRAMINE. [Concomitant]
     Active Substance: DIPHENHYDRAMINE
     Dosage: 25 MG, UNK
     Route: 048
     Dates: start: 20181116
  6. LMX [LIDOCAINE] [Concomitant]
     Dosage: 4 %, UNK
     Route: 061
     Dates: start: 20181116
  7. FABRAZYME [Suspect]
     Active Substance: AGALSIDASE BETA
     Indication: FABRY^S DISEASE
     Dosage: 60 MG, QOW
     Route: 041
     Dates: start: 20171201
  8. LIDOCAINE. [Concomitant]
     Active Substance: LIDOCAINE
     Dosage: 20.5 %, UNK
     Route: 061
     Dates: start: 20181116

REACTIONS (3)
  - Influenza [Unknown]
  - Pyrexia [Recovered/Resolved]
  - Burning sensation [Recovered/Resolved]
